FAERS Safety Report 16257591 (Version 2)
Quarter: 2019Q2

REPORT INFORMATION
  Report Type: Report from Study
  Country: PL (occurrence: PL)
  Receive Date: 20190430
  Receipt Date: 20190625
  Transmission Date: 20190711
  Serious: Yes (Hospitalization)
  Sender: FDA-Public Use
  Company Number: PL-TAKEDA-2019TUS019164

PATIENT
  Age: 25 Year
  Sex: Female
  Weight: 51.9 kg

DRUGS (16)
  1. HYOSCINE [Concomitant]
     Active Substance: SCOPOLAMINE
     Indication: ADVERSE EVENT
     Dosage: 20 MILLIGRAM, TID
     Route: 042
     Dates: start: 20190121, end: 20190315
  2. TRAMADOL. [Concomitant]
     Active Substance: TRAMADOL
     Indication: ADVERSE EVENT
     Dosage: 100 MILLIGRAM, TID
     Route: 042
     Dates: start: 20190221, end: 20190312
  3. CALCIUM CARBONATE. [Concomitant]
     Active Substance: CALCIUM CARBONATE
     Indication: ADVERSE EVENT
     Dosage: 500 MILLIGRAM, BID
     Route: 048
     Dates: start: 20190323
  4. CIPROFLOXACIN. [Concomitant]
     Active Substance: CIPROFLOXACIN
     Indication: ADVERSE EVENT
     Dosage: 200 MILLIGRAM
     Route: 042
     Dates: start: 20190315, end: 20190323
  5. HYDROXIZINUM [Concomitant]
     Active Substance: HYDROXYZINE HYDROCHLORIDE
     Indication: ADVERSE EVENT
     Dosage: 25 MILLIGRAM, QD
     Route: 048
     Dates: start: 20190311, end: 20190323
  6. DEXLANSOPRAZOLE [Concomitant]
     Active Substance: DEXLANSOPRAZOLE
     Dosage: 30 MILLIGRAM, QD
     Route: 048
     Dates: start: 20190418
  7. DALTEPARIN [Concomitant]
     Active Substance: DALTEPARIN
     Indication: ADVERSE EVENT
     Dosage: 5000 INTERNATIONAL UNIT, QD
     Route: 058
     Dates: start: 20190221, end: 20190323
  8. CHOLECALCIFEROL [Concomitant]
     Active Substance: CHOLECALCIFEROL
     Indication: ADVERSE EVENT
     Dosage: 0.05 MILLIGRAM, QD
     Route: 048
     Dates: start: 20190305, end: 20190328
  9. CHOLECALCIFEROL [Concomitant]
     Active Substance: CHOLECALCIFEROL
     Dosage: 10000 INTERNATIONAL UNIT, QD
     Route: 048
     Dates: start: 20190329
  10. AUGMENTIN [Concomitant]
     Active Substance: AMOXICILLIN\CLAVULANATE POTASSIUM
     Indication: ADVERSE EVENT
     Dosage: 1.2 GRAM, BID
     Route: 042
     Dates: start: 20190319, end: 20190323
  11. VEDOLIZUMAB [Suspect]
     Active Substance: VEDOLIZUMAB
     Indication: COLITIS ULCERATIVE
     Dosage: UNK UNK, Q2WEEKS
     Route: 058
     Dates: start: 20170802
  12. MESALAZINE [Concomitant]
     Active Substance: MESALAMINE
     Dosage: 3 GRAM, QD
     Route: 048
     Dates: start: 20130802
  13. KALIUM                             /00031401/ [Concomitant]
     Active Substance: POTASSIUM CHLORIDE
     Indication: ADVERSE EVENT
     Dosage: 782 MILLIGRAM, QD
     Route: 048
     Dates: start: 20190314, end: 20190319
  14. FUROSEMIDE. [Concomitant]
     Active Substance: FUROSEMIDE
     Indication: ADVERSE EVENT
     Dosage: 40 MILLIGRAM, QD
     Route: 048
     Dates: start: 20190305, end: 20190312
  15. ALENDRONATE [Concomitant]
     Active Substance: ALENDRONATE SODIUM
     Indication: ADVERSE EVENT
     Dosage: 70 MILLIGRAM, 1/WEEK
     Route: 048
     Dates: start: 20190315
  16. DEXLANSOPRAZOLE [Concomitant]
     Active Substance: DEXLANSOPRAZOLE
     Indication: ADVERSE EVENT
     Dosage: 60 MILLIGRAM, QD
     Route: 048
     Dates: start: 20190322, end: 20190328

REACTIONS (2)
  - Myalgia [Recovered/Resolved]
  - Muscular weakness [Recovered/Resolved]

NARRATIVE: CASE EVENT DATE: 20190328
